FAERS Safety Report 14385371 (Version 2)
Quarter: 2018Q1

REPORT INFORMATION
  Report Type: Spontaneous
  Country: US (occurrence: US)
  Receive Date: 20180115
  Receipt Date: 20180115
  Transmission Date: 20180509
  Serious: Yes (Other)
  Sender: FDA-Public Use
  Company Number: US-SA-2016SA229659

PATIENT
  Age: 65 Year
  Sex: Female
  Weight: 107.04 kg

DRUGS (17)
  1. TAMOXIFEN [Concomitant]
     Active Substance: TAMOXIFEN
     Indication: HORMONE THERAPY
     Route: 065
     Dates: start: 201510
  2. MAG-OX [Concomitant]
     Active Substance: MAGNESIUM OXIDE
  3. TAXOTERE [Suspect]
     Active Substance: DOCETAXEL
     Indication: BREAST CANCER FEMALE
     Route: 051
     Dates: start: 20150610, end: 20150610
  4. CYCLOPHOSPHAMIDE. [Concomitant]
     Active Substance: CYCLOPHOSPHAMIDE
     Route: 065
     Dates: start: 20150701, end: 20150701
  5. COCONUT OIL [Concomitant]
     Active Substance: COCONUT OIL
  6. METFORMIN [Concomitant]
     Active Substance: METFORMIN HYDROCHLORIDE
     Route: 065
     Dates: start: 201412
  7. ATORVASTATIN [Concomitant]
     Active Substance: ATORVASTATIN
  8. HYDROCHLOROTHIAZIDE/LISINOPRIL [Concomitant]
     Route: 065
     Dates: start: 1996
  9. LISINOPRIL. [Concomitant]
     Active Substance: LISINOPRIL
  10. POTASSIUM [Concomitant]
     Active Substance: POTASSIUM
  11. TAXOTERE [Suspect]
     Active Substance: DOCETAXEL
     Indication: BREAST CANCER FEMALE
     Route: 051
     Dates: start: 20150701, end: 20150701
  12. RANITIDINE. [Concomitant]
     Active Substance: RANITIDINE
  13. DICLOFENAC [Concomitant]
     Active Substance: DICLOFENAC
  14. AMLODIPINE [Concomitant]
     Active Substance: AMLODIPINE BESYLATE
  15. VITAMIN D [Concomitant]
     Active Substance: CHOLECALCIFEROL
  16. CYCLOPHOSPHAMIDE. [Concomitant]
     Active Substance: CYCLOPHOSPHAMIDE
     Route: 065
     Dates: start: 20150610, end: 20150610
  17. OCUVITE [Concomitant]
     Active Substance: VITAMINS

REACTIONS (5)
  - Anxiety [Unknown]
  - Pain [Unknown]
  - Impaired quality of life [Unknown]
  - Alopecia [Not Recovered/Not Resolved]
  - Emotional distress [Unknown]

NARRATIVE: CASE EVENT DATE: 201604
